FAERS Safety Report 22089949 (Version 1)
Quarter: 2023Q1

REPORT INFORMATION
  Report Type: Spontaneous
  Country: US (occurrence: None)
  Receive Date: 20230312
  Receipt Date: 20230312
  Transmission Date: 20230417
  Serious: Yes (Hospitalization)
  Sender: FDA-Public Use
  Company Number: None

PATIENT
  Sex: Male

DRUGS (1)
  1. HUMIRA [Suspect]
     Active Substance: ADALIMUMAB
     Indication: Crohn^s disease
     Dosage: 80 MG/0.8ML  SUBCUTNEOUS? ?RX1 : INJECT 2 PENS UNDER THE SKIN (SUBCUTANEOUS INJECTION) ON DAY 1, THE
     Route: 058
     Dates: start: 20221229

REACTIONS (1)
  - Surgery [None]
